FAERS Safety Report 25689740 (Version 1)
Quarter: 2025Q3

REPORT INFORMATION
  Report Type: Spontaneous
  Country: US (occurrence: None)
  Receive Date: 20250815
  Receipt Date: 20250815
  Transmission Date: 20251021
  Serious: Yes (Death)
  Sender: FDA-CTU
  Company Number: None

PATIENT
  Age: 93 Year
  Sex: Male

DRUGS (2)
  1. ASPIRIN [Suspect]
     Active Substance: ASPIRIN
  2. ALTEPLASE [Suspect]
     Active Substance: ALTEPLASE

REACTIONS (14)
  - Cerebrovascular accident [None]
  - Cyanosis [None]
  - Oxygen saturation decreased [None]
  - Heart rate decreased [None]
  - Mental status changes [None]
  - Tremor [None]
  - Lower respiratory tract infection [None]
  - Therapy interrupted [None]
  - Blood creatinine increased [None]
  - Contusion [None]
  - Cerebral ischaemia [None]
  - Cerebral mass effect [None]
  - Subarachnoid haemorrhage [None]
  - Confusional state [None]

NARRATIVE: CASE EVENT DATE: 20240217
